FAERS Safety Report 8181648-8 (Version None)
Quarter: 2012Q1

REPORT INFORMATION
  Report Type: 
  Country: None (occurrence: None)
  Receive Date: 20120302
  Receipt Date: 20120224
  Transmission Date: 20120608
  Serious: Yes (Hospitalization)
  Sender: FDA-Public Use
  Company Number: US-US-EMD SERONO, INC.-7115443

PATIENT
  Sex: Male
  Weight: 82 kg

DRUGS (5)
  1. REBIF [Suspect]
     Indication: MULTIPLE SCLEROSIS
     Route: 058
     Dates: start: 20111012
  2. LEXAPRO [Concomitant]
     Indication: ANXIETY
  3. UNSPECIFIED MEDICATION [Concomitant]
     Indication: LIPIDS INCREASED
  4. GABAPENTIN [Concomitant]
     Indication: PAIN IN EXTREMITY
  5. LEXAPRO [Concomitant]
     Indication: DEPRESSION

REACTIONS (2)
  - INJECTION SITE PAIN [None]
  - URINARY TRACT INFECTION [None]
